FAERS Safety Report 7584162-3 (Version None)
Quarter: 2011Q2

REPORT INFORMATION
  Report Type: 
  Country: None (occurrence: None)
  Receive Date: 20110531
  Receipt Date: 20101027
  Transmission Date: 20111010
  Serious: Yes (Other)
  Sender: FDA-Public Use
  Company Number: CIP10002611

PATIENT
  Age: 82 Year
  Sex: Female

DRUGS (5)
  1. PREVACID [Concomitant]
  2. BENICAR [Concomitant]
  3. ACTONEL [Suspect]
     Dosage: ORAL
     Route: 048
  4. ASTEPRO (AZELASTINE HYDROCHLORIDE) [Concomitant]
  5. SINGULAIR [Concomitant]

REACTIONS (1)
  - PELVIC FRACTURE [None]
